FAERS Safety Report 4433655-6 (Version None)
Quarter: 2004Q3

REPORT INFORMATION
  Report Type: 
  Country: None (occurrence: None)
  Receive Date: 20040826
  Receipt Date: 20040510
  Transmission Date: 20050211
  Serious: No
  Sender: FDA-Public Use
  Company Number: US-GLAXOSMITHKLINE-A0510197A

PATIENT
  Age: 80 Year
  Sex: Male
  Weight: 71.4 kg

DRUGS (10)
  1. AVODART [Suspect]
     Indication: BENIGN PROSTATIC HYPERPLASIA
     Dosage: .5MG PER DAY
     Route: 048
     Dates: start: 20040401
  2. PLAVIX [Concomitant]
  3. MULTI-VITAMIN [Concomitant]
  4. ECOTRIN [Concomitant]
  5. COLACE [Concomitant]
  6. ZOLOFT [Concomitant]
  7. CLARITIN [Concomitant]
  8. PEPCID AC [Concomitant]
  9. DIAZIDE [Concomitant]
  10. ENALAPRIL [Concomitant]

REACTIONS (3)
  - DRUG INEFFECTIVE [None]
  - MICTURITION URGENCY [None]
  - URINARY RETENTION [None]
